FAERS Safety Report 13496180 (Version 5)
Quarter: 2018Q1

REPORT INFORMATION
  Report Type: Spontaneous
  Country: IT (occurrence: IT)
  Receive Date: 20170428
  Receipt Date: 20180326
  Transmission Date: 20180508
  Serious: Yes (Hospitalization, Other)
  Sender: FDA-Public Use
  Company Number: IT-PFIZER INC-2017184685

PATIENT
  Age: 66 Year
  Sex: Male

DRUGS (4)
  1. LORAZEPAM. [Suspect]
     Active Substance: LORAZEPAM
     Indication: DRUG ABUSE
     Dosage: 27.5 MG, TOTAL
     Route: 048
     Dates: start: 20170328, end: 20170328
  2. ALPRAZOLAM. [Suspect]
     Active Substance: ALPRAZOLAM
     Indication: DRUG ABUSE
     Dosage: 20 MG, SINGLE (TOTAL)
     Route: 048
     Dates: start: 20170328, end: 20170328
  3. LAROXYL [Suspect]
     Active Substance: AMITRIPTYLINE HYDROCHLORIDE
     Indication: DRUG ABUSE
     Dosage: 10 ML, SINGLE (TOTAL)
     Route: 048
     Dates: start: 20170328, end: 20170328
  4. ETHYL ALCOHOL [Concomitant]
     Active Substance: ALCOHOL
     Dosage: UNK
     Route: 065

REACTIONS (4)
  - Overdose [Unknown]
  - Tachycardia [Unknown]
  - Sopor [Unknown]
  - Drug abuse [Unknown]

NARRATIVE: CASE EVENT DATE: 20170328
